FAERS Safety Report 11119511 (Version 1)
Quarter: 2015Q2

REPORT INFORMATION
  Report Type: Report from Study
  Country: US (occurrence: US)
  Receive Date: 20150518
  Receipt Date: 20150518
  Transmission Date: 20150821
  Serious: Yes (Other)
  Sender: FDA-Public Use
  Company Number: PHEH2015US006503

PATIENT
  Age: 40 Year
  Sex: Female

DRUGS (4)
  1. GILENYA [Suspect]
     Active Substance: FINGOLIMOD HYDROCHLORIDE
     Indication: RELAPSING-REMITTING MULTIPLE SCLEROSIS
     Dosage: 0.5 MG, QD
     Route: 048
     Dates: start: 2011, end: 201410
  2. B12//CYANOCOBALAMIN [Concomitant]
     Indication: VITAMIN B12 DEFICIENCY
     Dosage: 1000 UG, QD
     Route: 048
     Dates: start: 201411
  3. FERROUS SULFATE [Concomitant]
     Active Substance: FERROUS SULFATE\FERROUS SULFATE, DRIED
     Indication: ANAEMIA
     Dosage: 325 MG, QD
     Route: 048
     Dates: start: 201306
  4. GABAPENTIN. [Concomitant]
     Active Substance: GABAPENTIN
     Indication: PAIN
     Dosage: 300 MG, TID
     Route: 048
     Dates: start: 201307

REACTIONS (13)
  - Memory impairment [Unknown]
  - Burning sensation [Unknown]
  - Leukopenia [Recovered/Resolved]
  - Insomnia [Unknown]
  - Hypoaesthesia [Unknown]
  - Paraesthesia [Unknown]
  - Pain [Unknown]
  - Tearfulness [Unknown]
  - Back pain [Unknown]
  - Leukopenia [Recovered/Resolved]
  - Lymphopenia [Unknown]
  - Vision blurred [Unknown]
  - Demyelination [Unknown]

NARRATIVE: CASE EVENT DATE: 20130611
